FAERS Safety Report 24641104 (Version 2)
Quarter: 2024Q4

REPORT INFORMATION
  Report Type: Report from Study
  Country: BR (occurrence: BR)
  Receive Date: 20241120
  Receipt Date: 20241210
  Transmission Date: 20250115
  Serious: Yes (Other)
  Sender: CELLTRION
  Company Number: BR-CELLTRION INC.-2023BR010620

PATIENT

DRUGS (8)
  1. INFLIXIMAB-DYYB [Suspect]
     Active Substance: INFLIXIMAB-DYYB
     Indication: Ankylosing spondylitis
     Dosage: 4 AMPOULES OF 100 MG EACH, EVERY MONTH/4 AMPOULES EVERY 2 MONTHS
     Route: 042
     Dates: start: 20221108
  2. INFLIXIMAB-DYYB [Suspect]
     Active Substance: INFLIXIMAB-DYYB
     Dosage: 4 AMPOULES EVERY MONTH
     Route: 042
     Dates: start: 20231108
  3. INFLIXIMAB-DYYB [Suspect]
     Active Substance: INFLIXIMAB-DYYB
     Dosage: 4 VIALS EVERY 2 MONTHS
     Route: 042
     Dates: start: 20231129
  4. INFLIXIMAB-DYYB [Suspect]
     Active Substance: INFLIXIMAB-DYYB
     Dosage: 4 VIALS EVERY 2 MONTHS
     Route: 042
     Dates: start: 20231226
  5. ADALIMUMAB [Suspect]
     Active Substance: ADALIMUMAB
     Indication: Ankylosing spondylitis
     Dosage: 1 INJECTION OF ADALIMUMAB EVERY 14 DAYS
  6. GABAPENTIN [Concomitant]
     Active Substance: GABAPENTIN
     Indication: Intervertebral disc protrusion
     Dosage: 4 PILLS EVERY 8 HOURS
     Route: 048
     Dates: start: 202211
  7. MORPHINE [Concomitant]
     Active Substance: MORPHINE
     Indication: Pain
  8. METHOTREXATE [Concomitant]
     Active Substance: METHOTREXATE
     Indication: Product used for unknown indication
     Dosage: 6 PILLS A WEEK
     Route: 048

REACTIONS (10)
  - Cardiac arrest [Recovered/Resolved]
  - Syncope [Recovered/Resolved]
  - Arthralgia [Not Recovered/Not Resolved]
  - Spinal pain [Not Recovered/Not Resolved]
  - Malaise [Recovered/Resolved]
  - Infusion related hypersensitivity reaction [Not Recovered/Not Resolved]
  - Therapy interrupted [Not Recovered/Not Resolved]
  - Product prescribing issue [Not Recovered/Not Resolved]
  - Intentional product use issue [Unknown]
  - Drug ineffective [Recovered/Resolved]

NARRATIVE: CASE EVENT DATE: 20231226
